FAERS Safety Report 9031486 (Version 3)
Quarter: 2013Q2

REPORT INFORMATION
  Report Type: Spontaneous
  Country: JP (occurrence: JP)
  Receive Date: 20130124
  Receipt Date: 20130404
  Transmission Date: 20140414
  Serious: Yes (Other)
  Sender: FDA-Public Use
  Company Number: JP-PFIZER INC-2013028438

PATIENT
  Age: 66 Year
  Sex: Male

DRUGS (1)
  1. ZOSYN [Suspect]
     Dosage: UNK
     Route: 041

REACTIONS (1)
  - Leukocytoclastic vasculitis [Recovering/Resolving]
